FAERS Safety Report 10034586 (Version 1)
Quarter: 2014Q1

REPORT INFORMATION
  Report Type: Spontaneous
  Country: US (occurrence: None)
  Receive Date: 20140324
  Receipt Date: 20140324
  Transmission Date: 20141002
  Serious: Yes (Life-Threatening, Hospitalization, Disabling)
  Sender: FDA-Public Use
  Company Number: None

PATIENT
  Age: 57 Year
  Sex: Male
  Weight: 80 kg

DRUGS (6)
  1. CLOPIDOGREL [Suspect]
     Indication: CORONARY ARTERIAL STENT INSERTION
     Dosage: 2 TABLETS, ONCE, ORAL
     Route: 048
     Dates: start: 20140215, end: 20140215
  2. CLOPIDOGREL [Suspect]
     Indication: PREOPERATIVE CARE
     Dosage: 2 TABLETS, ONCE, ORAL
     Route: 048
     Dates: start: 20140215, end: 20140215
  3. ASPIRIN [Concomitant]
  4. PLAVIX [Concomitant]
  5. EPTIFIBATIDE [Concomitant]
  6. HEPARIN [Concomitant]

REACTIONS (4)
  - Chest pain [None]
  - Acute myocardial infarction [None]
  - Coronary artery stenosis [None]
  - Disease recurrence [None]
